FAERS Safety Report 9189185 (Version 2)
Quarter: 2013Q3

REPORT INFORMATION
  Report Type: Spontaneous
  Country: US (occurrence: US)
  Receive Date: 20130326
  Receipt Date: 20130819
  Transmission Date: 20140515
  Serious: Yes (Other)
  Sender: FDA-Public Use
  Company Number: US-AMGEN-USASP2013019970

PATIENT
  Sex: 0

DRUGS (3)
  1. NEUPOGEN [Suspect]
     Indication: PROPHYLAXIS
     Dosage: 300 MCG, UNK
     Route: 065
  2. GEMCITABINE [Concomitant]
     Dosage: UNK
  3. ABRAXANE                           /01116001/ [Concomitant]
     Dosage: UNK

REACTIONS (1)
  - Neutrophil count decreased [Unknown]
